FAERS Safety Report 18996509 (Version 1)
Quarter: 2021Q1

REPORT INFORMATION
  Report Type: Spontaneous
  Country: DE (occurrence: DE)
  Receive Date: 20210311
  Receipt Date: 20210311
  Transmission Date: 20210420
  Serious: Yes (Death, Hospitalization)
  Sender: FDA-Public Use
  Company Number: DE-TEVA-2021-DE-1887325

PATIENT
  Age: 78 Year
  Sex: Male

DRUGS (9)
  1. PACLITAXEL. [Suspect]
     Active Substance: PACLITAXEL
     Dosage: CYCLE 2 D1 ON 23102020
  2. PANTOPRAZOL [Concomitant]
     Active Substance: PANTOPRAZOLE SODIUM
     Dosage: 40 MILLIGRAM DAILY; 1?0?0?0
  3. TRACUTIL [Concomitant]
     Active Substance: CHROMIC CHLORIDE\CUPROUS CHLORIDE\FERRIC CHLORIDE\MANGANESE CHLORIDE\POTASSIUM IODIDE\SODIUM FLUORIDE\SODIUM MOLYBDATE DIHYDRATE\SODIUM SELENITE\ZINC CHLORIDE
     Dosage: 1 DOSAGE FORMS DAILY; 1?0?0?0
  4. ASS 100 [Concomitant]
     Active Substance: ASPIRIN
     Dosage: 100 MILLIGRAM DAILY; 0?1?0?0
  5. MOVICOL [Concomitant]
     Active Substance: POLYETHYLENE GLYCOL 3350\POTASSIUM CHLORIDE\SODIUM BICARBONATE\SODIUM CHLORIDE
     Dosage: 1 DOSAGE FORMS DAILY; 1?0?0?0, SACHETS / GRANULES
  6. CARBOPLATIN. [Suspect]
     Active Substance: CARBOPLATIN
     Dosage: CYCLE 2 D1 ON 23102020
  7. ACTRAPID [Concomitant]
     Active Substance: INSULIN HUMAN
     Dosage: 6 IU (INTERNATIONAL UNIT) DAILY; 1?1?1?0
     Route: 058
  8. CERNEVIT [Concomitant]
     Active Substance: VITAMINS
     Dosage: 1 DOSAGE FORMS DAILY; 1?0?0?0
  9. COLECALCIFEROL (VITAMIN D) [Concomitant]
     Active Substance: CHOLECALCIFEROL
     Dosage: 1000 IU (INTERNATIONAL UNIT) DAILY; 1?0?0?0

REACTIONS (4)
  - General physical health deterioration [Unknown]
  - Asthenia [Unknown]
  - Hypoglycaemia [Unknown]
  - Hyperglycaemia [Unknown]
